FAERS Safety Report 25065068 (Version 1)
Quarter: 2025Q1

REPORT INFORMATION
  Report Type: Spontaneous
  Country: TW (occurrence: TW)
  Receive Date: 20250311
  Receipt Date: 20250311
  Transmission Date: 20250408
  Serious: Yes (Other)
  Sender: AMGEN
  Company Number: TW-AMGEN-TWNSP2025044681

PATIENT

DRUGS (6)
  1. BEVACIZUMAB [Suspect]
     Active Substance: BEVACIZUMAB
     Indication: Breast cancer metastatic
     Route: 065
  2. BEVACIZUMAB [Suspect]
     Active Substance: BEVACIZUMAB
     Indication: HER2 negative breast cancer
  3. VINORELBINE [Suspect]
     Active Substance: VINORELBINE TARTRATE
     Indication: Breast cancer metastatic
     Route: 065
  4. VINORELBINE [Suspect]
     Active Substance: VINORELBINE TARTRATE
     Indication: HER2 negative breast cancer
  5. PLATINUM [Suspect]
     Active Substance: PLATINUM
     Indication: Breast cancer metastatic
     Route: 065
  6. PLATINUM [Suspect]
     Active Substance: PLATINUM
     Indication: HER2 negative breast cancer

REACTIONS (14)
  - Adverse event [Unknown]
  - Anaemia [Unknown]
  - Neutropenia [Unknown]
  - Febrile neutropenia [Unknown]
  - Thrombocytopenia [Unknown]
  - Hypokalaemia [Unknown]
  - Breast cancer metastatic [Unknown]
  - Hepatic function abnormal [Unknown]
  - Therapy partial responder [Unknown]
  - Blood creatinine increased [Unknown]
  - Hypomagnesaemia [Unknown]
  - Hyponatraemia [Unknown]
  - Weight decreased [Unknown]
  - Mucosal inflammation [Unknown]
